FAERS Safety Report 9054188 (Version 1)
Quarter: 2013Q1

REPORT INFORMATION
  Report Type: Report from Study
  Country: ID (occurrence: ID)
  Receive Date: 20130208
  Receipt Date: 20130208
  Transmission Date: 20140127
  Serious: Yes (Death, Hospitalization, Other)
  Sender: FDA-Public Use
  Company Number: ID-ROCHE-1187746

PATIENT
  Age: 65 Year
  Sex: Female

DRUGS (2)
  1. PEGASYS [Suspect]
     Indication: CHRONIC HEPATITIS C
     Route: 058
     Dates: start: 20120301
  2. COPEGUS [Concomitant]
     Indication: CHRONIC HEPATITIS C
     Route: 048
     Dates: start: 20120301, end: 2012

REACTIONS (2)
  - Death [Fatal]
  - Haematemesis [Unknown]
